FAERS Safety Report 25879248 (Version 1)
Quarter: 2025Q4

REPORT INFORMATION
  Report Type: Report from Study
  Country: US (occurrence: US)
  Receive Date: 20251003
  Receipt Date: 20251003
  Transmission Date: 20260118
  Serious: Yes (Death)
  Sender: ABBVIE
  Company Number: US-ABBVIE-6487641

PATIENT
  Age: 84 Year
  Sex: Female

DRUGS (7)
  1. SYNTHROID [Suspect]
     Active Substance: LEVOTHYROXINE SODIUM
     Indication: Product used for unknown indication
     Dosage: SYNTHROID 100MCG
     Route: 048
     Dates: start: 20250617
  2. LUTEIN [Concomitant]
     Active Substance: LUTEIN
     Indication: Product used for unknown indication
  3. NINLARO [Concomitant]
     Active Substance: IXAZOMIB CITRATE
     Indication: Product used for unknown indication
  4. GUANFACINE [Concomitant]
     Active Substance: GUANFACINE
     Indication: Product used for unknown indication
  5. LISINOPRIL [Concomitant]
     Active Substance: LISINOPRIL
     Indication: Product used for unknown indication
  6. PRAMOSONE [Concomitant]
     Active Substance: HYDROCORTISONE ACETATE\PRAMOXINE HYDROCHLORIDE
     Indication: Product used for unknown indication
     Dosage: PRAMOSONE CREAM 1%
  7. TIMOLOL MALEATE [Concomitant]
     Active Substance: TIMOLOL MALEATE
     Indication: Product used for unknown indication
     Dosage: TIMOLOL MAL SOL 0.25% OP

REACTIONS (1)
  - Death [Fatal]

NARRATIVE: CASE EVENT DATE: 20250101
